FAERS Safety Report 8178264-0 (Version None)
Quarter: 2012Q1

REPORT INFORMATION
  Report Type: 
  Country: None (occurrence: None)
  Receive Date: 20120126
  Receipt Date: 20111222
  Transmission Date: 20120608
  Serious: Yes (Other)
  Sender: FDA-Public Use
  Company Number: PHEH2011US012395

PATIENT
  Age: 5 Year
  Sex: Male

DRUGS (4)
  1. DEPAKOTE [Concomitant]
  2. SABRIL [Concomitant]
  3. AFINITOR [Suspect]
     Indication: TUBEROUS SCLEROSIS
     Dosage: 5 MG, TIW, ORAL
     Route: 048
     Dates: start: 20110218
  4. TAURINE [Concomitant]

REACTIONS (1)
  - CONVULSION [None]
